FAERS Safety Report 7271809-4 (Version None)
Quarter: 2011Q1

REPORT INFORMATION
  Report Type: 
  Country: None (occurrence: None)
  Receive Date: 20110131
  Receipt Date: 20110131
  Transmission Date: 20110831
  Serious: Yes (Hospitalization, Other)
  Sender: FDA-Public Use
  Company Number: None

PATIENT
  Age: 44 Year
  Sex: Female
  Weight: 124.2856 kg

DRUGS (1)
  1. METOLAZONE [Suspect]
     Indication: FLUID RETENTION
     Dates: start: 20101224, end: 20101224

REACTIONS (4)
  - RENAL FAILURE ACUTE [None]
  - PANCREATITIS [None]
  - DEHYDRATION [None]
  - BLOOD POTASSIUM DECREASED [None]
